FAERS Safety Report 8984192 (Version 2)
Quarter: 2013Q3

REPORT INFORMATION
  Report Type: Spontaneous
  Country: JP (occurrence: None)
  Receive Date: 20121214
  Receipt Date: 20130807
  Transmission Date: 20140515
  Serious: Yes (Hospitalization, Other)
  Sender: FDA-Public Use
  Company Number: 2009JP007530

PATIENT
  Age: 35 Year
  Sex: Female
  Weight: 91.8 kg

DRUGS (49)
  1. PROGRAF (TACROLIMUS) CAPSULE [Suspect]
     Indication: LUPUS NEPHRITIS
     Dosage: 3 MG, UNKNOWN/D, ORAL
     Route: 048
     Dates: start: 20070605
  2. PREDONINE [Suspect]
     Indication: LUPUS NEPHRITIS
     Dosage: 50 MG, UNKNOWN/D, ORAL
     Route: 048
     Dates: end: 20070626
  3. PARIET (RABEPRAZOLE SODIUM) [Concomitant]
  4. LASIX (FUROSEMIDE) [Concomitant]
  5. LENDORMIN (BROTIZOLAM) [Concomitant]
  6. DORAL (QUAZEPAM) [Concomitant]
  7. BENZALIN (NITRAZEPAM) [Concomitant]
  8. HIRNAMIN (LEVOMEPROMAZINE MALEATE) [Concomitant]
  9. ZYLORIC (ALLOPURINOL) [Concomitant]
  10. AMOBAN (ZOPICLONE) [Concomitant]
  11. MEILAX (ETHYL LOFLAZEPATE) [Concomitant]
  12. BAKTAR (SULFAMETHOXAZOLE, TRIMETHOPRIM) [Concomitant]
  13. DIOVAN (VALSARTAN) [Concomitant]
  14. LIPITOR (ATORVASTATIN CALCIUM) [Concomitant]
  15. FOSAMAC (ALENDRONATE SODIUM) [Concomitant]
  16. PERSANTIN-L (DIPYRIDAMOLE) [Concomitant]
  17. TOLEDOMIN (MILNACIPRAN HYDROCHLORIDE) [Concomitant]
  18. ATELEC (CILNIDIPINE) [Concomitant]
  19. TANNALBIN (ALBUMIN TANNATE) [Concomitant]
  20. LANDEL (EFONIDIPINE HYDROCHLORIDE) [Concomitant]
  21. ULCERLMIN (SUCRALFATE) [Concomitant]
  22. HIBERNA (PROMETHAZINE HYDROCHLORIDE) [Concomitant]
  23. RISPERDAL (RISPERIDONE) [Concomitant]
  24. ZADITEN (KETOTIFEN FUMARATE) [Concomitant]
  25. AZEPTIN (AZELASTINE HYDROCHLORIDE) [Concomitant]
  26. PATANOL (OLOPATADINE HYDROCHLORIDE) [Concomitant]
  27. VESICARE (SOLIFENACIN) [Concomitant]
  28. AVELOX (MOXIFLOXACIN HYDROCHLORIDE) [Concomitant]
  29. ROCEPHIN (CEFTRIAXONE SODIUM) [Concomitant]
  30. ZITHROMAC (AZITHROMYCIN) [Concomitant]
  31. LAC-B (BIFIDOBACTERIUM LACTIS) [Concomitant]
  32. CRAVIT (LEVOFLOXACIN) [Concomitant]
  33. COCARL (ARACETAMOL) [Concomitant]
  34. SOLITA T (ELECTROLYTES NOS) [Concomitant]
  35. DEPAS (ETIZOLAM) [Concomitant]
  36. NOVORAPID (INSULIN ASPART) [Concomitant]
  37. LEVEMIR (INSULIN DETEMIR) [Concomitant]
  38. ALOSENN/02118001/(SENNA SPP.) [Concomitant]
  39. CELLCEPT?/01275102/ (MYCOPHENOLATE MOFETIL) [Concomitant]
  40. LULICON (LULICONAZOLE) [Concomitant]
  41. POLYFUL (POLYCARBOPHIL CALCIUM) [Concomitant]
  42. LANTUS (INSULIN GLARGINE) [Concomitant]
  43. LOPEMIN (LOPERAMIDE HYDROCHLORIDE) [Concomitant]
  44. ADSORBIN (ALUMINIUM SILICATE) [Concomitant]
  45. NAUZELIN (DOMPERIDONE) [Concomitant]
  46. GANATON (ITOPRIDE HYDROCHLORIDE) [Concomitant]
  47. GENTACIN (GENTAMICIN SULFATE) [Concomitant]
  48. PL GRAN. (CAFFEINE, PARACETAMOL, PROMETHAZINE METHYLENE DISALICYLATE, SALICYLAMIDE) GRANULE [Concomitant]
  49. TAKEPRON (LANSOPRAZOLE) [Concomitant]

REACTIONS (17)
  - Depression [None]
  - Blood pressure increased [None]
  - Diarrhoea [None]
  - Gastric ulcer [None]
  - Hypersensitivity [None]
  - Diabetes mellitus [None]
  - Bronchitis [None]
  - Upper respiratory tract inflammation [None]
  - Gastroenteritis [None]
  - Osteoporosis [None]
  - Constipation [None]
  - Pyrexia [None]
  - Immunosuppression [None]
  - Pollakiuria [None]
  - Nasopharyngitis [None]
  - Skin erosion [None]
  - Seasonal allergy [None]
